FAERS Safety Report 9874457 (Version 1)
Quarter: 2014Q1

REPORT INFORMATION
  Report Type: Spontaneous
  Country: US (occurrence: US)
  Receive Date: 20140206
  Receipt Date: 20140206
  Transmission Date: 20141002
  Serious: Yes (Hospitalization)
  Sender: FDA-Public Use
  Company Number: US-BIOGENIDEC-2014BI004006

PATIENT
  Age: 71 Year
  Sex: Female

DRUGS (4)
  1. AVONEX [Suspect]
     Indication: MULTIPLE SCLEROSIS
     Route: 030
     Dates: start: 20070329, end: 201401
  2. B12 LIQUID HEALTH BOOSTER [Concomitant]
  3. CALCIUM 500 [Concomitant]
  4. CLARITIN [Concomitant]

REACTIONS (2)
  - Kidney infection [Recovered/Resolved]
  - Multiple sclerosis relapse [Recovered/Resolved]
